FAERS Safety Report 18752452 (Version 1)
Quarter: 2021Q1

REPORT INFORMATION
  Report Type: Spontaneous
  Country: PR (occurrence: PR)
  Receive Date: 20210118
  Receipt Date: 20210118
  Transmission Date: 20210419
  Serious: Yes (Other)
  Sender: FDA-Public Use
  Company Number: PR-LUPIN PHARMACEUTICALS INC.-2021-00197

PATIENT
  Age: 87 Year
  Sex: Female

DRUGS (1)
  1. OSELTAMIVIR [Suspect]
     Active Substance: OSELTAMIVIR
     Indication: INFLUENZA
     Dosage: 30 MILLIGRAM, BID
     Route: 065

REACTIONS (1)
  - Acute kidney injury [Unknown]
